FAERS Safety Report 4638654-7 (Version None)
Quarter: 2005Q2

REPORT INFORMATION
  Report Type: 
  Country: None (occurrence: None)
  Receive Date: 20050419
  Receipt Date: 20050309
  Transmission Date: 20051028
  Serious: Yes (Death, Hospitalization)
  Sender: FDA-Public Use
  Company Number: 200510892FR

PATIENT
  Age: 46 Year
  Sex: Female

DRUGS (2)
  1. TAXOTERE [Suspect]
     Indication: BREAST CANCER
     Route: 042
     Dates: start: 20050214, end: 20050214
  2. GRANOCYTE [Concomitant]
     Indication: PROPHYLAXIS
     Dates: start: 20050220

REACTIONS (5)
  - ACUTE RESPIRATORY DISTRESS SYNDROME [None]
  - CARDIOGENIC SHOCK [None]
  - PULMONARY FIBROSIS [None]
  - PYREXIA [None]
  - RIGHT VENTRICULAR FAILURE [None]
